FAERS Safety Report 5875257-0 (Version None)
Quarter: 2008Q3

REPORT INFORMATION
  Report Type: 
  Country: None (occurrence: None)
  Receive Date: 20080909
  Receipt Date: 20080901
  Transmission Date: 20090109
  Serious: Yes (Other)
  Sender: FDA-Public Use
  Company Number: DE-AVENTIS-200811461DE

PATIENT
  Age: 60 Year
  Sex: Female
  Weight: 82 kg

DRUGS (6)
  1. ENOXAPARIN SODIUM [Suspect]
     Indication: THROMBOSIS PROPHYLAXIS
     Route: 058
     Dates: start: 20080520, end: 20080621
  2. ENOXAPARIN SODIUM [Suspect]
     Route: 058
     Dates: start: 20080520, end: 20080621
  3. ENOXAPARIN SODIUM [Suspect]
     Route: 058
     Dates: start: 20080520, end: 20080621
  4. TRAUMEEL S                         /01124601/ [Concomitant]
     Indication: DRUG USE FOR UNKNOWN INDICATION
     Dosage: DOSE: 3X1
     Route: 048
  5. LEVOTHYROXINE SODIUM [Concomitant]
     Indication: HYPOTHYROIDISM
     Route: 048
     Dates: start: 19980101
  6. OPIPRAMOL [Concomitant]
     Indication: ANXIETY
     Dosage: DOSE: 1X1/2
     Route: 048
     Dates: start: 20060101

REACTIONS (2)
  - ABDOMINAL PAIN [None]
  - PANIC ATTACK [None]
